FAERS Safety Report 16301359 (Version 1)
Quarter: 2019Q2

REPORT INFORMATION
  Report Type: Report from Study
  Country: US (occurrence: US)
  Receive Date: 20190510
  Receipt Date: 20190510
  Transmission Date: 20190711
  Serious: Yes (Hospitalization)
  Sender: FDA-Public Use
  Company Number: US-GILEAD-2019-0406829

PATIENT
  Age: 12 Year
  Sex: Male

DRUGS (1)
  1. AZTREONAM LYSINE [Suspect]
     Active Substance: AZTREONAM LYSINE
     Indication: CYSTIC FIBROSIS
     Dosage: INHALE 75MG 3 TIMES DAILY FOR 28 DAYS ON AND THEN 28 DAYS OFF
     Route: 055
     Dates: start: 20171215

REACTIONS (1)
  - Road traffic accident [Unknown]

NARRATIVE: CASE EVENT DATE: 20190501
